FAERS Safety Report 24553496 (Version 1)
Quarter: 2024Q4

REPORT INFORMATION
  Report Type: Report from Study
  Country: US (occurrence: US)
  Receive Date: 20241028
  Receipt Date: 20241028
  Transmission Date: 20250115
  Serious: Yes (Other)
  Sender: TAKEDA
  Company Number: US-TAKEDA-2024TUS100560

PATIENT
  Sex: Female
  Weight: 63.492 kg

DRUGS (1)
  1. FRUQUINTINIB [Suspect]
     Active Substance: FRUQUINTINIB
     Indication: Colon cancer
     Dosage: 5 MILLIGRAM
     Route: 048
     Dates: start: 20240924

REACTIONS (5)
  - Colon cancer [Unknown]
  - Abdominal pain upper [Unknown]
  - Memory impairment [Unknown]
  - Dizziness [Unknown]
  - Blood pressure increased [Unknown]
